FAERS Safety Report 4830270-7 (Version None)
Quarter: 2005Q4

REPORT INFORMATION
  Report Type: 
  Country: None (occurrence: None)
  Receive Date: 20051117
  Receipt Date: 20050927
  Transmission Date: 20060501
  Serious: Yes (Other)
  Sender: FDA-Public Use
  Company Number: DE-GLAXOSMITHKLINE-D0047598A

PATIENT
  Age: 64 Year
  Sex: Male
  Weight: 104 kg

DRUGS (7)
  1. QUILONUM RETARD [Suspect]
     Dosage: 2.5TAB PER DAY
     Route: 065
     Dates: start: 19790101, end: 20050101
  2. SEROQUEL [Concomitant]
     Dosage: 25MG TWICE PER DAY
     Route: 065
     Dates: start: 20000101
  3. ANTI HYPERTENSIVE [Concomitant]
     Route: 065
  4. ANTIDIABETIC [Concomitant]
     Route: 065
  5. METFORMIN [Concomitant]
     Route: 065
  6. THIOCTACID [Concomitant]
     Dosage: 600MG UNKNOWN
     Route: 065
  7. PSYCHO-THERAPEUTIC DRUGS [Concomitant]
     Route: 065
     Dates: start: 19680101

REACTIONS (7)
  - BLOOD CREATININE INCREASED [None]
  - FATIGUE [None]
  - NAUSEA [None]
  - PAIN [None]
  - PRURITUS [None]
  - RENAL DISORDER [None]
  - RENAL FAILURE [None]
